FAERS Safety Report 7347868-7 (Version None)
Quarter: 2011Q1

REPORT INFORMATION
  Report Type: 
  Country: None (occurrence: None)
  Receive Date: 20110311
  Receipt Date: 20110302
  Transmission Date: 20110831
  Serious: Yes (Other)
  Sender: FDA-Public Use
  Company Number: CA-ASTRAZENECA-2011SE11869

PATIENT
  Age: 53 Year
  Sex: Male

DRUGS (3)
  1. SYNTHROID [Concomitant]
     Indication: HYPOTHYROIDISM
     Route: 048
  2. BENADRYL [Concomitant]
  3. ATACAND [Suspect]
     Indication: HYPERTENSION
     Route: 048
     Dates: start: 20100601, end: 20110225

REACTIONS (10)
  - ANXIETY [None]
  - HOT FLUSH [None]
  - DEPRESSION [None]
  - DIZZINESS [None]
  - PSORIASIS [None]
  - FATIGUE [None]
  - THYROID NEOPLASM [None]
  - FLUSHING [None]
  - SKIN DISORDER [None]
  - PRURITUS [None]
